FAERS Safety Report 19042634 (Version 1)
Quarter: 2021Q1

REPORT INFORMATION
  Report Type: Spontaneous
  Country: DK (occurrence: DK)
  Receive Date: 20210323
  Receipt Date: 20210323
  Transmission Date: 20210420
  Serious: Yes (Hospitalization)
  Sender: FDA-Public Use
  Company Number: DK-NOVOPROD-795974

PATIENT
  Age: 47 Year
  Sex: Female

DRUGS (4)
  1. PANODIL [Concomitant]
     Active Substance: ACETAMINOPHEN
     Indication: PAIN
     Route: 065
  2. SAXENDA [Suspect]
     Active Substance: LIRAGLUTIDE
     Indication: OBESITY
     Dosage: 3 MG, QD
     Route: 058
     Dates: start: 20190310, end: 20210127
  3. IPREN [Concomitant]
     Active Substance: IBUPROFEN
     Indication: PAIN
  4. TREO [Concomitant]
     Active Substance: ASPIRIN\CAFFEINE
     Indication: PAIN

REACTIONS (2)
  - Tendonitis [Recovering/Resolving]
  - Tendon rupture [Recovered/Resolved]

NARRATIVE: CASE EVENT DATE: 201909
